FAERS Safety Report 18865619 (Version 2)
Quarter: 2021Q1

REPORT INFORMATION
  Report Type: Spontaneous
  Country: US (occurrence: US)
  Receive Date: 20210208
  Receipt Date: 20210311
  Transmission Date: 20210420
  Serious: Yes (Other)
  Sender: FDA-Public Use
  Company Number: US-SA-2021SA036690

PATIENT
  Sex: Male

DRUGS (1)
  1. APIDRA SOLOSTAR [Suspect]
     Active Substance: INSULIN GLULISINE
     Dosage: UNK
     Route: 065

REACTIONS (13)
  - Dizziness [Unknown]
  - Taste disorder [Unknown]
  - Chest discomfort [Unknown]
  - Hypertension [Unknown]
  - Feeling abnormal [Unknown]
  - Musculoskeletal stiffness [Unknown]
  - Dysuria [Unknown]
  - Chest pain [Unknown]
  - Hyperglycaemia [Unknown]
  - Abdominal rigidity [Unknown]
  - Product quality issue [Unknown]
  - Angina pectoris [Unknown]
  - Sensory loss [Unknown]
